FAERS Safety Report 15271729 (Version 1)
Quarter: 2018Q3

REPORT INFORMATION
  Report Type: Spontaneous
  Country: US (occurrence: US)
  Receive Date: 20180727
  Receipt Date: 20180727
  Transmission Date: 20181010
  Serious: No
  Sender: FDA-Public Use
  Company Number: None

PATIENT
  Age: 75 Year
  Sex: Female
  Weight: 65.77 kg

DRUGS (12)
  1. LEVOTHYROXINE. [Concomitant]
     Active Substance: LEVOTHYROXINE
  2. DAILY VITAMIN [Concomitant]
     Active Substance: VITAMINS
  3. BENAZAPRIL [Concomitant]
  4. VITAMIN C [Concomitant]
     Active Substance: ASCORBIC ACID
  5. ASPRIN [Concomitant]
     Active Substance: ASPIRIN
  6. METOPROLOL. [Concomitant]
     Active Substance: METOPROLOL
  7. MEMBERS MARK NICOTINE [Suspect]
     Active Substance: NICOTINE
     Indication: PRODUCT USED FOR UNKNOWN INDICATION
     Dosage: ?          QUANTITY:8 PIECES CUT UP;OTHER ROUTE:CHEWED?
     Dates: start: 2008, end: 20180710
  8. ZYRTEC [Concomitant]
     Active Substance: CETIRIZINE HYDROCHLORIDE
  9. MUCINEX [Concomitant]
     Active Substance: GUAIFENESIN
  10. PRAVASTATIN. [Concomitant]
     Active Substance: PRAVASTATIN
  11. TUMS [Concomitant]
     Active Substance: CALCIUM CARBONATE
  12. TEMAZEPAM. [Concomitant]
     Active Substance: TEMAZEPAM

REACTIONS (10)
  - Oesophageal pain [None]
  - Vomiting [None]
  - Product physical issue [None]
  - Abdominal distension [None]
  - Abdominal pain upper [None]
  - Oral discomfort [None]
  - Wrong technique in product usage process [None]
  - Product compounding quality issue [None]
  - Feeling abnormal [None]
  - Suspected product tampering [None]

NARRATIVE: CASE EVENT DATE: 20180704
